FAERS Safety Report 23974117 (Version 2)
Quarter: 2024Q3

REPORT INFORMATION
  Report Type: Spontaneous
  Country: GB (occurrence: GB)
  Receive Date: 20240614
  Receipt Date: 20240710
  Transmission Date: 20241017
  Serious: Yes (Other)
  Sender: ALKEM
  Company Number: GB-AUROBINDO-AUR-APL-2024-025000

PATIENT
  Age: 79 Year
  Sex: Male

DRUGS (10)
  1. QUETIAPINE FUMARATE [Suspect]
     Active Substance: QUETIAPINE FUMARATE
     Indication: Schizoaffective disorder
     Dosage: 200 MILLIGRAM, BID (200 MILLIGRAM FILM-COATED TABLET)
     Route: 048
     Dates: start: 20140807
  2. QUETIAPINE FUMARATE [Suspect]
     Active Substance: QUETIAPINE FUMARATE
     Dosage: 400 MILLIGRAM, BID (400 MILLIGRAM FILM-COATED TABLET)
     Route: 048
     Dates: start: 20140807
  3. CLONAZEPAM [Concomitant]
     Active Substance: CLONAZEPAM
     Indication: Product used for unknown indication
     Dosage: UNK, HS (500 MICROGRAM TABLET  AT AN UNKNOWN DOSE ONCE A DAY)
     Route: 048
     Dates: start: 20140807
  4. DIAZEPAM [Concomitant]
     Active Substance: DIAZEPAM
     Indication: Product used for unknown indication
     Dosage: 1 DOSAGE FORM, BID ( 2 MILLIGRAM TABLET AT A DOSE OF 1 DOSAGE FORM, TWO TIMES A DAY (2MG IN THE MORN
     Route: 048
     Dates: start: 20140807
  5. DUTASTERIDE [Concomitant]
     Active Substance: DUTASTERIDE
     Indication: Product used for unknown indication
     Dosage: UNK, OD (500 MICROGRAM CAPSULE)
     Route: 048
     Dates: start: 20140811
  6. FUROSEMIDE [Concomitant]
     Active Substance: FUROSEMIDE
     Indication: Product used for unknown indication
     Dosage: UNK, OD (20 MILLIGRAM TABLET)
     Route: 048
     Dates: start: 20200722
  7. POLYETHYLENE GLYCOLS [Concomitant]
     Active Substance: POLYETHYLENE GLYCOLS
     Indication: Product used for unknown indication
     Dosage: UNK, OD (DISSOLVE CONTENTS OF ONE SACHET IN HALF A GLASS (125ML) OF WATER AND TAKE EACH DAY)
     Route: 048
     Dates: start: 20220620
  8. ACETAMINOPHEN [Concomitant]
     Active Substance: ACETAMINOPHEN
     Indication: Product used for unknown indication
     Dosage: UNK (500 MILLIGRAM TABLET)
     Route: 048
     Dates: start: 20201120
  9. SIMVASTATIN [Concomitant]
     Active Substance: SIMVASTATIN
     Indication: Product used for unknown indication
     Dosage: UNK, HS (40 MILLIGRAM TABLET AT AN UNKNOWN DOSE ONCE A DAY)
     Route: 048
     Dates: start: 20140807
  10. TAMSULOSIN [Concomitant]
     Active Substance: TAMSULOSIN
     Indication: Product used for unknown indication
     Dosage: UNK, OD (400 MICROGRAM MODIFIED RELEASE CAPSULE)
     Route: 048
     Dates: start: 20140807

REACTIONS (1)
  - Pancytopenia [Not Recovered/Not Resolved]

NARRATIVE: CASE EVENT DATE: 20230806
